FAERS Safety Report 6655742-4 (Version None)
Quarter: 2010Q1

REPORT INFORMATION
  Report Type: 
  Country: None (occurrence: None)
  Receive Date: 20100329
  Receipt Date: 20100317
  Transmission Date: 20100710
  Serious: Yes (Life-Threatening, Hospitalization)
  Sender: FDA-Public Use
  Company Number: KR-SANOFI-AVENTIS-2010SA000988

PATIENT
  Age: 40 Year
  Sex: Male

DRUGS (10)
  1. OXALIPLATIN [Suspect]
     Indication: CHEMOTHERAPY
     Dates: start: 20091013, end: 20091013
  2. OXALIPLATIN [Suspect]
     Dates: start: 20091013, end: 20091013
  3. BLINDED THERAPY [Suspect]
     Indication: GASTRIC CANCER
     Route: 041
     Dates: start: 20080604, end: 20080604
  4. BLINDED THERAPY [Suspect]
     Route: 041
     Dates: start: 20080604, end: 20080604
  5. BLINDED THERAPY [Suspect]
     Route: 041
     Dates: start: 20090915, end: 20090915
  6. CAPECITABINE [Suspect]
     Indication: GASTRIC CANCER
     Route: 048
     Dates: start: 20080605
  7. CAPECITABINE [Suspect]
     Route: 048
     Dates: end: 20090915
  8. CISPLATIN [Suspect]
     Indication: GASTRIC CANCER
     Dates: start: 20080604, end: 20080604
  9. CISPLATIN [Suspect]
     Dates: start: 20090915, end: 20090915
  10. FLUOROURACIL [Suspect]
     Indication: CHEMOTHERAPY
     Dates: start: 20091013, end: 20091013

REACTIONS (1)
  - MICROANGIOPATHIC HAEMOLYTIC ANAEMIA [None]
